FAERS Safety Report 7808091-2 (Version None)
Quarter: 2011Q4

REPORT INFORMATION
  Report Type: 
  Country: None (occurrence: None)
  Receive Date: 20111011
  Receipt Date: 20111003
  Transmission Date: 20120403
  Serious: Yes (Hospitalization)
  Sender: FDA-Public Use
  Company Number: FR-ROCHE-804300

PATIENT
  Sex: Female

DRUGS (7)
  1. OFLOXACIN [Suspect]
     Indication: URINARY TRACT INFECTION
     Route: 042
     Dates: start: 20110903, end: 20110905
  2. NOCTAMIDE [Concomitant]
     Dosage: AT BED TIME
  3. GENERIC COMPONENT(S) NOT KNOWN [Concomitant]
  4. BISOPROLOL [Concomitant]
     Dosage: BISOPROLOL/HYD 10/6.25 MG: 1 TABLET IN THE MORNING
  5. METHOTREXATE SODIUM [Suspect]
     Indication: RHEUMATOID ARTHRITIS
     Route: 058
     Dates: start: 20101001, end: 20110903
  6. ACETAMINOPHEN AND TRAMADOL HCL [Suspect]
     Indication: PAIN
     Route: 048
     Dates: start: 20110903, end: 20110905
  7. MABTHERA [Suspect]
     Indication: RHEUMATOID ARTHRITIS
     Route: 042
     Dates: start: 20110429, end: 20110523

REACTIONS (2)
  - AGRANULOCYTOSIS [None]
  - LYMPHOPENIA [None]
